FAERS Safety Report 20174247 (Version 2)
Quarter: 2021Q4

REPORT INFORMATION
  Report Type: Spontaneous
  Country: US (occurrence: US)
  Receive Date: 20211213
  Receipt Date: 20211223
  Transmission Date: 20220303
  Serious: No
  Sender: FDA-Public Use
  Company Number: US-BAUSCH-BL-2021-039968

PATIENT
  Sex: Male

DRUGS (3)
  1. TIMOLOL MALEATE [Suspect]
     Active Substance: TIMOLOL MALEATE
     Indication: Intraocular pressure test
     Route: 047
  2. TIMOLOL MALEATE [Suspect]
     Active Substance: TIMOLOL MALEATE
     Indication: Intraocular pressure test
     Route: 047
     Dates: start: 20211130, end: 20211130
  3. TIMOLOL MALEATE [Suspect]
     Active Substance: TIMOLOL MALEATE
     Dosage: HE USED ONLY USED 1 DROP IN EACH EYE TIMOLOL MALEATE OPHTHALMIC SOLUTION IN OCUDOSE (GENERIC)
     Route: 047

REACTIONS (2)
  - Vision blurred [Recovered/Resolved]
  - Instillation site dryness [Recovering/Resolving]

NARRATIVE: CASE EVENT DATE: 20211130
